FAERS Safety Report 8059793-7 (Version None)
Quarter: 2012Q1

REPORT INFORMATION
  Report Type: 
  Country: None (occurrence: None)
  Receive Date: 20120120
  Receipt Date: 20120118
  Transmission Date: 20120608
  Serious: No
  Sender: FDA-Public Use
  Company Number: PHEH2011US05274

PATIENT
  Sex: Female

DRUGS (13)
  1. TASIGNA [Suspect]
     Dosage: 150 MG, BID
  2. LOPRESSOR [Concomitant]
     Dosage: 50 MG, DAILY
     Route: 048
  3. SUCRALFATE [Concomitant]
     Dosage: 1 G, DAILY
     Route: 048
  4. SIMVASTATIN [Concomitant]
     Dosage: 5 MG, DAILY
     Route: 048
  5. PAROXETINE [Concomitant]
     Dosage: 10 MG, DAILY
     Route: 048
  6. LEVOTHYROXINE SODIUM [Concomitant]
     Dosage: 25 UG, DAILY
     Route: 048
  7. OMEPRAZOLE [Concomitant]
     Dosage: 20 MG, DAILY
     Route: 048
  8. METOPROLOL TARTRATE [Concomitant]
     Dosage: 25 MG, DAILY
     Route: 048
  9. CYCLOBENZAPRINE [Concomitant]
     Dosage: 5 MG, DAILY
     Route: 048
  10. TASIGNA [Suspect]
     Dosage: 300 MG, BID
     Route: 048
  11. CETIRIZINE [Concomitant]
     Dosage: 5 MG, DAILY
     Route: 048
  12. LASIX [Concomitant]
     Dosage: 20 MG, DAILY
     Route: 048
  13. ACETAMINOPHEN AND HYDROCODONE BITARTRATE [Concomitant]
     Dosage: UNK UKN, UNK

REACTIONS (5)
  - WHITE BLOOD CELL COUNT INCREASED [None]
  - ALOPECIA [None]
  - DRY SKIN [None]
  - ABDOMINAL PAIN UPPER [None]
  - PRURITUS [None]
